FAERS Safety Report 8347840-4 (Version None)
Quarter: 2012Q2

REPORT INFORMATION
  Report Type: 
  Country: None (occurrence: None)
  Receive Date: 20120509
  Receipt Date: 20120502
  Transmission Date: 20120825
  Serious: Yes (Hospitalization)
  Sender: FDA-Public Use
  Company Number: GB-VIIV HEALTHCARE LIMITED-B0799380A

PATIENT
  Age: 38 Year
  Sex: Female

DRUGS (5)
  1. FOLIC ACID [Concomitant]
  2. CALCIUM [Concomitant]
  3. IRON SUPPLEMENTS [Concomitant]
  4. ABACAVIR SULFATE/LAMIVUDINE [Suspect]
     Indication: HIV INFECTION
     Dosage: 1TAB PER DAY
     Route: 048
     Dates: start: 20091001, end: 20120428
  5. NEVIRAPINE [Concomitant]
     Dates: start: 20111001

REACTIONS (2)
  - MATERNAL EXPOSURE DURING PREGNANCY [None]
  - ANAEMIA HAEMOLYTIC AUTOIMMUNE [None]
